FAERS Safety Report 7576629-9 (Version None)
Quarter: 2011Q2

REPORT INFORMATION
  Report Type: 
  Country: None (occurrence: None)
  Receive Date: 20110628
  Receipt Date: 20110616
  Transmission Date: 20111010
  Serious: Yes (Hospitalization)
  Sender: FDA-Public Use
  Company Number: US-ELI_LILLY_AND_COMPANY-US201105002653

PATIENT
  Sex: Female
  Weight: 78.458 kg

DRUGS (10)
  1. FUROSEMIDE [Concomitant]
     Dosage: UNK
  2. METFORMIN HCL [Concomitant]
     Indication: PRODUCT USED FOR UNKNOWN INDICATION
     Dosage: UNK UNK, TID
     Dates: start: 20090424
  3. DIOVAN [Concomitant]
     Dosage: UNK
  4. WARFARIN SODIUM [Concomitant]
     Dosage: UNK
  5. BYETTA [Suspect]
     Indication: TYPE 2 DIABETES MELLITUS
     Dosage: 5 UG, BID
     Route: 058
     Dates: start: 20090729, end: 20100518
  6. GLIPIZIDE [Concomitant]
     Indication: PRODUCT USED FOR UNKNOWN INDICATION
     Dosage: UNK, QD
  7. BYETTA [Suspect]
     Dosage: 10 UG, BID
     Route: 058
     Dates: start: 20100518, end: 20101229
  8. LOVENOX [Concomitant]
     Dosage: UNK
  9. METOPROLOL TARTRATE [Concomitant]
     Dosage: UNK
  10. PRAVASTATIN [Concomitant]
     Dosage: UNK

REACTIONS (11)
  - URINE OUTPUT DECREASED [None]
  - NECK PAIN [None]
  - VOMITING [None]
  - DYSPEPSIA [None]
  - POST PROCEDURAL HAEMORRHAGE [None]
  - DEHYDRATION [None]
  - INTERVERTEBRAL DISC PROTRUSION [None]
  - HYPERTENSION [None]
  - RENAL FAILURE [None]
  - MALAISE [None]
  - CHOLELITHIASIS [None]
